FAERS Safety Report 12524491 (Version 2)
Quarter: 2016Q3

REPORT INFORMATION
  Report Type: Spontaneous
  Country: US (occurrence: US)
  Receive Date: 20160704
  Receipt Date: 20160824
  Transmission Date: 20161109
  Serious: No
  Sender: FDA-Public Use
  Company Number: US-009507513-1606USA014196

PATIENT
  Age: 19 Year
  Sex: Female
  Weight: 94.79 kg

DRUGS (1)
  1. NEXPLANON [Suspect]
     Active Substance: ETONOGESTREL
     Dosage: UNK
     Route: 059
     Dates: start: 201503, end: 20160526

REACTIONS (6)
  - Menstrual disorder [Recovered/Resolved]
  - Vaginal haemorrhage [Recovered/Resolved]
  - Mood swings [Recovered/Resolved]
  - Affect lability [Recovered/Resolved]
  - Depression [Recovered/Resolved]
  - Menorrhagia [Recovered/Resolved]

NARRATIVE: CASE EVENT DATE: 201504
